FAERS Safety Report 6239917-4 (Version None)
Quarter: 2009Q2

REPORT INFORMATION
  Report Type: 
  Country: None (occurrence: None)
  Receive Date: 20090619
  Receipt Date: 20090608
  Transmission Date: 20091009
  Serious: Yes (Other)
  Sender: FDA-Public Use
  Company Number: OPER20090118

PATIENT
  Sex: Female

DRUGS (1)
  1. OPANA ER [Suspect]

REACTIONS (4)
  - DRUG EFFECT DECREASED [None]
  - EYE PAIN [None]
  - TREMOR [None]
  - WRONG TECHNIQUE IN DRUG USAGE PROCESS [None]
